FAERS Safety Report 23262312 (Version 2)
Quarter: 2024Q1

REPORT INFORMATION
  Report Type: Spontaneous
  Country: AU (occurrence: AU)
  Receive Date: 20231205
  Receipt Date: 20240104
  Transmission Date: 20240410
  Serious: Yes (Life-Threatening, Hospitalization)
  Sender: FDA-Public Use
  Company Number: AU-BAYER-2023A172429

PATIENT
  Age: 41 Year
  Sex: Male

DRUGS (3)
  1. GADOBUTROL [Suspect]
     Active Substance: GADOBUTROL
     Indication: Myocarditis
     Dosage: 15 MG, ONCE
     Route: 042
  2. GADOBUTROL [Suspect]
     Active Substance: GADOBUTROL
     Indication: Magnetic resonance imaging heart
  3. DIAZEPAM [Concomitant]
     Active Substance: DIAZEPAM
     Indication: Claustrophobia

REACTIONS (7)
  - Vomiting [Recovered/Resolved]
  - Paraesthesia oral [Recovered/Resolved]
  - Lip swelling [Recovered/Resolved]
  - Bronchospasm [Recovered/Resolved]
  - Eye swelling [Recovered/Resolved]
  - Paraesthesia [Recovered/Resolved]
  - Pruritus [Recovered/Resolved]

NARRATIVE: CASE EVENT DATE: 20231129
